FAERS Safety Report 13125527 (Version 1)
Quarter: 2017Q1

REPORT INFORMATION
  Report Type: Spontaneous
  Country: US (occurrence: US)
  Receive Date: 20170118
  Receipt Date: 20170118
  Transmission Date: 20170428
  Serious: No
  Sender: FDA-Public Use
  Company Number: US-DEPOMED, INC.-US-2016DEP008224

PATIENT
  Age: 56 Year
  Sex: Female

DRUGS (1)
  1. NUCYNTA [Suspect]
     Active Substance: TAPENTADOL HYDROCHLORIDE
     Indication: LUMBAR RADICULOPATHY
     Dosage: 50 MG, QID, ONE MONTH ONLY
     Route: 048

REACTIONS (2)
  - Pollakiuria [Recovered/Resolved]
  - Nightmare [Recovered/Resolved]
